FAERS Safety Report 8165628-4 (Version None)
Quarter: 2012Q1

REPORT INFORMATION
  Report Type: 
  Country: None (occurrence: None)
  Receive Date: 20120103
  Receipt Date: 20111018
  Transmission Date: 20120608
  Serious: No
  Sender: FDA-Public Use
  Company Number: AE-2011-002459

PATIENT

DRUGS (2)
  1. INCIVEK [Suspect]
     Dosage: 2250 MG (750 MG, 1 IN 8 HR)
  2. NOVOLOG [Concomitant]

REACTIONS (1)
  - BLOOD GLUCOSE DECREASED [None]
